FAERS Safety Report 10983028 (Version 1)
Quarter: 2015Q2

REPORT INFORMATION
  Report Type: Spontaneous
  Country: US (occurrence: None)
  Receive Date: 20150402
  Receipt Date: 20150402
  Transmission Date: 20150821
  Serious: No
  Sender: FDA-Public Use
  Company Number: None

PATIENT
  Age: 70 Year
  Sex: Male

DRUGS (1)
  1. ZYTIGA [Suspect]
     Active Substance: ABIRATERONE ACETATE
     Dosage: STRENGTH: 250
     Dates: start: 20150323, end: 20150325

REACTIONS (5)
  - Diarrhoea [None]
  - Nausea [None]
  - Decreased appetite [None]
  - Treatment failure [None]
  - Hot flush [None]

NARRATIVE: CASE EVENT DATE: 20150326
